FAERS Safety Report 23343120 (Version 7)
Quarter: 2024Q2

REPORT INFORMATION
  Report Type: Spontaneous
  Country: US (occurrence: US)
  Receive Date: 20231227
  Receipt Date: 20240521
  Transmission Date: 20240715
  Serious: Yes (Hospitalization, Other)
  Sender: FDA-Public Use
  Company Number: US-Calliditas-2023CAL01656

PATIENT
  Age: 60 Year
  Sex: Male

DRUGS (2)
  1. TARPEYO [Suspect]
     Active Substance: BUDESONIDE
     Indication: IgA nephropathy
     Dosage: 16 MG (4 MG CAPSULES) ONCE DAILY
     Route: 048
     Dates: start: 20231104
  2. VITAMIN C [Concomitant]
     Active Substance: ASCORBIC ACID

REACTIONS (6)
  - Peripheral swelling [Not Recovered/Not Resolved]
  - Dyspnoea [Not Recovered/Not Resolved]
  - Weight increased [Not Recovered/Not Resolved]
  - Prescribed underdose [Recovered/Resolved]
  - Atrial fibrillation [Recovered/Resolved]
  - Staphylococcal infection [Unknown]

NARRATIVE: CASE EVENT DATE: 20231110
